FAERS Safety Report 8886680 (Version 1)
Quarter: 2012Q4

REPORT INFORMATION
  Report Type: 
  Country: US (occurrence: US)
  Receive Date: 20121105
  Receipt Date: 20121105
  Transmission Date: 20130627
  Serious: Yes (Hospitalization)
  Sender: FDA-Public Use
  Company Number: PHHY2012US100372

PATIENT
  Age: 79 Year
  Sex: Male

DRUGS (17)
  1. METOCLOPRAMIDE [Suspect]
     Indication: GASTROINTESTINAL MOTILITY DISORDER
     Dosage: 10 mg every six hours
     Route: 042
  2. CARBIDOPA + L-DOPA [Concomitant]
     Dosage: 1 DF every 12 hours
     Route: 048
  3. LISINOPRIL [Concomitant]
     Dosage: 10 mg daily
     Route: 048
  4. FUROSEMIDE [Concomitant]
     Dosage: 20 mg, daily
     Route: 048
  5. POLYETHYLENE GLYCOL [Concomitant]
     Indication: CONSTIPATION
     Dosage: 17 mg, UNK
     Route: 048
  6. ISOPHANE INSULIN HUMAN [Concomitant]
     Indication: DIABETES MELLITUS
     Dosage: 20 units morning and 16 units evening
     Route: 058
  7. MORPHINE [Concomitant]
     Dosage: 10 mg
     Route: 042
  8. MORPHINE [Concomitant]
     Dosage: 2 mg
     Route: 042
  9. NALOXONE [Concomitant]
     Dosage: 0.4 mg
     Route: 042
  10. THIAMINE [Concomitant]
     Dosage: 100 mg
     Route: 042
  11. ERTAPENEM [Concomitant]
     Dosage: 1 DF, BID
     Route: 042
  12. ONDANSETRON [Concomitant]
     Dosage: 4 mg, QD
     Route: 042
  13. NEOSTIGMINE METHYLSULFATE [Concomitant]
     Dosage: 5 mg, QD
     Route: 042
  14. GLYCOPYRROLATE [Concomitant]
     Dosage: 1 mg, QD
     Route: 042
  15. FAMOTIDINE [Concomitant]
     Dosage: 20 mg, BID
     Route: 042
  16. METOPROLOL TARTRATE [Concomitant]
     Dosage: 25 mg, BID
     Route: 048
  17. METOPROLOL TARTRATE [Concomitant]
     Dosage: 5 mg, QD
     Route: 042

REACTIONS (7)
  - Encephalopathy [Recovered/Resolved]
  - Agitation [Recovered/Resolved]
  - Confusional state [Recovered/Resolved]
  - Restlessness [Recovered/Resolved]
  - Electroencephalogram abnormal [Recovered/Resolved]
  - Parkinson^s disease [Unknown]
  - Muscle rigidity [Recovered/Resolved]
